FAERS Safety Report 16244668 (Version 2)
Quarter: 2019Q2

REPORT INFORMATION
  Report Type: Report from Study
  Country: US (occurrence: US)
  Receive Date: 20190426
  Receipt Date: 20190528
  Transmission Date: 20190711
  Serious: Yes (Other)
  Sender: FDA-Public Use
  Company Number: US-OTSUKA-2019_014702

PATIENT
  Sex: Male
  Weight: 170 kg

DRUGS (1)
  1. BREXPIPRAZOLE [Suspect]
     Active Substance: BREXPIPRAZOLE
     Indication: MAJOR DEPRESSION
     Dosage: 0.5MG, QD AT BEDTIME
     Route: 065
     Dates: start: 20171127

REACTIONS (3)
  - Brain injury [Unknown]
  - Road traffic accident [Unknown]
  - Renal failure [Unknown]
